FAERS Safety Report 17725104 (Version 4)
Quarter: 2020Q3

REPORT INFORMATION
  Report Type: Spontaneous
  Country: DE (occurrence: DE)
  Receive Date: 20200429
  Receipt Date: 20200708
  Transmission Date: 20201102
  Serious: Yes (Other)
  Sender: FDA-Public Use
  Company Number: NVSC2020DE113525

PATIENT
  Age: 42 Year
  Sex: Female
  Weight: 50 kg

DRUGS (13)
  1. GILENYA [Suspect]
     Active Substance: FINGOLIMOD HYDROCHLORIDE
     Dosage: UNK
     Route: 065
     Dates: start: 201710, end: 201805
  2. OCRELIZUMAB. [Suspect]
     Active Substance: OCRELIZUMAB
     Dosage: 600 MG
     Route: 042
     Dates: start: 20190117
  3. INTERFERON BETA?1A [Concomitant]
     Active Substance: INTERFERON BETA-1A
     Indication: PRODUCT USED FOR UNKNOWN INDICATION
     Dosage: UNK
     Route: 030
     Dates: start: 201208, end: 201308
  4. OCRELIZUMAB. [Suspect]
     Active Substance: OCRELIZUMAB
     Indication: MULTIPLE SCLEROSIS
     Dosage: 300 MG, BIW
     Route: 042
     Dates: start: 20180703, end: 20180717
  5. FAMPYRA [Concomitant]
     Active Substance: DALFAMPRIDINE
     Indication: MULTIPLE SCLEROSIS
     Dosage: 20 MG, QD
     Route: 048
  6. FINGOLIMOD. [Concomitant]
     Active Substance: FINGOLIMOD
     Indication: PRODUCT USED FOR UNKNOWN INDICATION
     Dosage: UNK
     Route: 065
     Dates: start: 201609, end: 201709
  7. DEKRISTOL [Concomitant]
     Active Substance: CHOLECALCIFEROL
     Indication: VITAMIN D DEFICIENCY
     Dosage: 2000 IU
     Route: 048
     Dates: start: 20190117
  8. GILENYA [Suspect]
     Active Substance: FINGOLIMOD HYDROCHLORIDE
     Indication: MULTIPLE SCLEROSIS
     Dosage: 0.5 MG, QD
     Route: 048
     Dates: start: 201609
  9. OCRELIZUMAB. [Suspect]
     Active Substance: OCRELIZUMAB
     Dosage: 300 MG
     Route: 042
     Dates: start: 20180717, end: 20180717
  10. FAMPYRA [Concomitant]
     Active Substance: DALFAMPRIDINE
     Dosage: ONGOING
     Route: 048
  11. METHIONINE [Concomitant]
     Active Substance: METHIONINE
     Indication: PRODUCT USED FOR UNKNOWN INDICATION
     Dosage: 1500 MG, QD
     Route: 065
  12. METHIONINE [Concomitant]
     Active Substance: METHIONINE
     Dosage: 500 MG
     Route: 065
  13. NATALIZUMAB [Concomitant]
     Active Substance: NATALIZUMAB
     Indication: PRODUCT USED FOR UNKNOWN INDICATION
     Dosage: UNK
     Route: 065
     Dates: start: 201409, end: 201412

REACTIONS (8)
  - Amenorrhoea [Recovered/Resolved]
  - Pollakiuria [Unknown]
  - Pharyngeal disorder [Unknown]
  - Urinary retention [Unknown]
  - Basal cell carcinoma [Recovered/Resolved]
  - Vertigo positional [Unknown]
  - Hot flush [Not Recovered/Not Resolved]
  - Micturition urgency [Unknown]

NARRATIVE: CASE EVENT DATE: 20180731
